FAERS Safety Report 16408955 (Version 3)
Quarter: 2023Q1

REPORT INFORMATION
  Report Type: Spontaneous
  Country: GR (occurrence: GR)
  Receive Date: 20190610
  Receipt Date: 20230213
  Transmission Date: 20230418
  Serious: Yes (Hospitalization, Other)
  Sender: FDA-Public Use
  Company Number: GR-BOEHRINGERINGELHEIM-2019-BI-024928

PATIENT
  Age: 65 Year
  Sex: Male

DRUGS (1)
  1. IDARUCIZUMAB [Suspect]
     Active Substance: IDARUCIZUMAB
     Indication: Procoagulant therapy
     Route: 042

REACTIONS (5)
  - Haemorrhagic transformation stroke [Unknown]
  - Drug ineffective [Unknown]
  - General physical health deterioration [Unknown]
  - Aphasia [Unknown]
  - Hemiplegia [Unknown]
